FAERS Safety Report 22588705 (Version 1)
Quarter: 2023Q2

REPORT INFORMATION
  Report Type: Spontaneous
  Country: ES (occurrence: ES)
  Receive Date: 20230612
  Receipt Date: 20230612
  Transmission Date: 20230722
  Serious: Yes (Other)
  Sender: FDA-Public Use
  Company Number: None

PATIENT
  Age: 72 Year
  Sex: Male

DRUGS (4)
  1. TAMSULOSIN HYDROCHLORIDE [Interacting]
     Active Substance: TAMSULOSIN HYDROCHLORIDE
     Indication: Benign prostatic hyperplasia
     Dosage: TAMSULOSIN HYDROCHLORIDE (2751CH)
     Route: 065
     Dates: start: 20230328, end: 20230410
  2. BISOPROLOL [Interacting]
     Active Substance: BISOPROLOL
     Indication: Cardiac failure
     Dosage: BISOPROLOL (2328A)
     Route: 065
     Dates: start: 20230328, end: 20230410
  3. ENTRESTO [Interacting]
     Active Substance: SACUBITRIL\VALSARTAN
     Indication: Cardiac failure
     Dosage: STRENGTH: 24 MG/26 MG 28 TABLETS
     Route: 065
     Dates: start: 20230328, end: 20230410
  4. HYDROCHLOROTHIAZIDE [Interacting]
     Active Substance: HYDROCHLOROTHIAZIDE
     Indication: Hypertension
     Dosage: HYDROCHLOROTHIAZIDE (1343A)
     Route: 065
     Dates: start: 20230328, end: 20230410

REACTIONS (3)
  - Hypotension [Recovering/Resolving]
  - Fall [Recovered/Resolved]
  - Drug interaction [Unknown]

NARRATIVE: CASE EVENT DATE: 20230410
